FAERS Safety Report 8155810-4 (Version None)
Quarter: 2012Q1

REPORT INFORMATION
  Report Type: 
  Country: None (occurrence: None)
  Receive Date: 20120222
  Receipt Date: 20120216
  Transmission Date: 20120608
  Serious: Yes (Other)
  Sender: FDA-Public Use
  Company Number: US-BAYER-2012-017045

PATIENT

DRUGS (1)
  1. NEXAVAR [Suspect]
     Dosage: UNK

REACTIONS (1)
  - CARDIOMYOPATHY [None]
